FAERS Safety Report 21989579 (Version 1)
Quarter: 2023Q1

REPORT INFORMATION
  Report Type: Other
  Country: TW (occurrence: TW)
  Receive Date: 20230214
  Receipt Date: 20230214
  Transmission Date: 20230418
  Serious: Yes (Hospitalization, Other)
  Sender: FDA-Public Use
  Company Number: TW-Bion-011152

PATIENT
  Age: 42 Year
  Sex: Male

DRUGS (5)
  1. DICLOFENAC POTASSIUM [Suspect]
     Active Substance: DICLOFENAC POTASSIUM
     Indication: Influenza like illness
  2. IBUPROFEN [Suspect]
     Active Substance: IBUPROFEN
     Indication: Product used for unknown indication
  3. MEFENAMIC ACID [Concomitant]
     Active Substance: MEFENAMIC ACID
     Indication: Influenza like illness
  4. ACETAMINOPHEN [Concomitant]
     Active Substance: ACETAMINOPHEN
     Indication: Influenza like illness
  5. FAMOTIDINE [Concomitant]
     Active Substance: FAMOTIDINE
     Indication: Influenza like illness

REACTIONS (2)
  - Vanishing bile duct syndrome [Unknown]
  - Drug ineffective [Not Recovered/Not Resolved]
